FAERS Safety Report 7114409-9 (Version None)
Quarter: 2010Q4

REPORT INFORMATION
  Report Type: 
  Country: None (occurrence: None)
  Receive Date: 20101119
  Receipt Date: 20101116
  Transmission Date: 20110411
  Serious: Yes (Life-Threatening, Hospitalization)
  Sender: FDA-Public Use
  Company Number: FR-PFIZER INC-2010149318

PATIENT
  Age: 70 Year
  Sex: Male

DRUGS (4)
  1. CAMPTOSAR [Suspect]
     Dosage: 320 MG, CYCLIC
     Route: 042
     Dates: start: 20100428, end: 20100608
  2. FLUOROURACIL [Concomitant]
     Dosage: 2950 MG
     Route: 042
     Dates: start: 20090811
  3. AVASTIN [Concomitant]
     Dosage: 350 MG, UNK
     Route: 042
     Dates: start: 20100428
  4. ONDANSETRON [Concomitant]
     Route: 042

REACTIONS (2)
  - ACUTE RESPIRATORY FAILURE [None]
  - INTERSTITIAL LUNG DISEASE [None]
